FAERS Safety Report 9330013 (Version 1)
Quarter: 2013Q2

REPORT INFORMATION
  Report Type: Spontaneous
  Country: US (occurrence: US)
  Receive Date: 20130604
  Receipt Date: 20130604
  Transmission Date: 20140414
  Serious: Yes (Other)
  Sender: FDA-Public Use
  Company Number: US-SANOFI-AVENTIS-2012SA056706

PATIENT
  Age: 62 Year
  Sex: Female
  Weight: 113 kg

DRUGS (8)
  1. LANTUS [Suspect]
     Indication: TYPE 2 DIABETES MELLITUS
     Dosage: DOSE:20 UNIT(S)
     Route: 058
  2. SOLOSTAR [Suspect]
     Indication: TYPE 2 DIABETES MELLITUS
  3. FUROSEMIDE [Concomitant]
     Indication: FLUID RETENTION
  4. GLIMEPIRIDE [Concomitant]
     Indication: DIABETES MELLITUS
     Route: 048
  5. ATORVASTATIN [Concomitant]
     Indication: BLOOD CHOLESTEROL
  6. DIOVAN HCT [Concomitant]
     Indication: HYPERTENSION
  7. JANUVIA [Concomitant]
     Indication: DIABETES MELLITUS
  8. LABETALOL [Concomitant]
     Indication: HYPERTENSION

REACTIONS (1)
  - Cataract [Unknown]
